FAERS Safety Report 9740171 (Version 2)
Quarter: 2013Q4

REPORT INFORMATION
  Report Type: Spontaneous
  Country: GB (occurrence: GB)
  Receive Date: 20131209
  Receipt Date: 20131220
  Transmission Date: 20140711
  Serious: Yes (Hospitalization, Other)
  Sender: FDA-Public Use
  Company Number: GB-TEVA-449093ISR

PATIENT
  Age: 66 Year
  Sex: Male
  Weight: 55 kg

DRUGS (3)
  1. TERBINAFINE [Suspect]
     Indication: ONYCHOMYCOSIS
     Route: 048
     Dates: start: 20130924, end: 20131114
  2. COVONIA BRONCHIAL [Concomitant]
  3. IBUPROFEN [Concomitant]

REACTIONS (3)
  - Pancreatitis [Not Recovered/Not Resolved]
  - Gastrointestinal inflammation [Unknown]
  - Liver function test abnormal [Unknown]
